FAERS Safety Report 20640716 (Version 1)
Quarter: 2022Q1

REPORT INFORMATION
  Report Type: Spontaneous
  Country: US (occurrence: US)
  Receive Date: 20220327
  Receipt Date: 20220327
  Transmission Date: 20220423
  Serious: No
  Sender: FDA-Public Use
  Company Number: US-SANOFI-01026937

PATIENT
  Age: 79 Year
  Sex: Female

DRUGS (1)
  1. KEVZARA [Suspect]
     Active Substance: SARILUMAB
     Dosage: DRUG STRUCTURE DOSAGE : 200 MG DRUG INTERVAL DOSAGE : UNKNOWN DRUG TREATMENT DURATION:,200 MG

REACTIONS (1)
  - Product dispensing error [Unknown]
